FAERS Safety Report 19624632 (Version 1)
Quarter: 2021Q3

REPORT INFORMATION
  Report Type: Spontaneous
  Country: BR (occurrence: BR)
  Receive Date: 20210729
  Receipt Date: 20210729
  Transmission Date: 20211014
  Serious: Yes (Death)
  Sender: FDA-Public Use
  Company Number: BR-ROCHE-2878165

PATIENT
  Age: 83 Year
  Sex: Male
  Weight: 71 kg

DRUGS (1)
  1. TOCILIZUMAB. [Suspect]
     Active Substance: TOCILIZUMAB
     Indication: COVID-19
     Route: 042
     Dates: start: 20210603, end: 20210603

REACTIONS (2)
  - COVID-19 [Fatal]
  - Off label use [Unknown]

NARRATIVE: CASE EVENT DATE: 20210603
